FAERS Safety Report 12466920 (Version 1)
Quarter: 2016Q2

REPORT INFORMATION
  Report Type: Spontaneous
  Country: US (occurrence: None)
  Receive Date: 20160614
  Receipt Date: 20160614
  Transmission Date: 20160815
  Serious: Yes (Other)
  Sender: FDA-Public Use
  Company Number: None

PATIENT
  Age: 32 Year
  Sex: Female
  Weight: 50.35 kg

DRUGS (3)
  1. METHYLPHENIDATE. [Suspect]
     Active Substance: METHYLPHENIDATE
     Indication: NARCOLEPSY
     Route: 048
     Dates: start: 20160515, end: 20160601
  2. LAMICTAL [Concomitant]
     Active Substance: LAMOTRIGINE
  3. MIRENA [Concomitant]
     Active Substance: LEVONORGESTREL

REACTIONS (3)
  - Tremor [None]
  - Heart rate increased [None]
  - Nervousness [None]

NARRATIVE: CASE EVENT DATE: 20160601
